FAERS Safety Report 5513998-5 (Version None)
Quarter: 2007Q4

REPORT INFORMATION
  Report Type: 
  Country: None (occurrence: None)
  Receive Date: 20071113
  Receipt Date: 20071030
  Transmission Date: 20080405
  Serious: Yes (Death, Hospitalization)
  Sender: FDA-Public Use
  Company Number: FR-AMGEN-UK250997

PATIENT
  Age: 52 Year
  Sex: Female

DRUGS (4)
  1. NEULASTA [Suspect]
     Indication: CHEMOTHERAPY
     Route: 058
     Dates: start: 20070922, end: 20070922
  2. TAXOTERE [Suspect]
     Route: 042
     Dates: start: 20070921, end: 20070921
  3. SOLU-MEDROL [Suspect]
     Route: 042
  4. ZOFRAN [Suspect]

REACTIONS (7)
  - ALANINE AMINOTRANSFERASE INCREASED [None]
  - ASPARTATE AMINOTRANSFERASE INCREASED [None]
  - RHABDOMYOLYSIS [None]
  - SKIN DISCOLOURATION [None]
  - STAPHYLOCOCCAL INFECTION [None]
  - TONGUE OEDEMA [None]
  - TOXIC SHOCK SYNDROME STAPHYLOCOCCAL [None]
